FAERS Safety Report 5753839-4 (Version None)
Quarter: 2008Q2

REPORT INFORMATION
  Report Type: 
  Country: None (occurrence: None)
  Receive Date: 20080530
  Receipt Date: 20070410
  Transmission Date: 20081010
  Serious: No
  Sender: FDA-Public Use
  Company Number: A0647027A

PATIENT
  Sex: Female
  Weight: 43.5 kg

DRUGS (21)
  1. FLOLAN [Suspect]
     Indication: PULMONARY ARTERIAL HYPERTENSION
     Route: 042
     Dates: start: 20030411
  2. LOPID [Concomitant]
     Dosage: 600MG TWICE PER DAY
     Route: 048
  3. REGLAN [Concomitant]
     Dosage: 5MG FOUR TIMES PER DAY
     Route: 048
  4. VALIUM [Concomitant]
     Dosage: 10MG THREE TIMES PER DAY
     Route: 048
  5. METOCLOPRAMIDE [Concomitant]
     Dosage: 5MG FOUR TIMES PER DAY
     Route: 048
  6. NEXIUM [Concomitant]
     Dosage: 40MG TWICE PER DAY
     Route: 048
  7. HYDROXYZINE HCL [Concomitant]
     Dosage: 25MG TWICE PER DAY
     Route: 048
  8. MICRO-K 10 EXTENTABS [Concomitant]
     Dosage: 60MEQ PER DAY
     Route: 048
  9. FUROSEMIDE [Concomitant]
     Dosage: 80MG TWICE PER DAY
     Route: 048
  10. SILDENAFIL CITRATE [Concomitant]
     Dosage: 20MG TWICE PER DAY
     Route: 048
  11. GUAIFENESIN DM [Concomitant]
     Dosage: 5ML AS REQUIRED
     Route: 048
  12. SPIRONOLACTONE [Concomitant]
     Dosage: 100MG IN THE MORNING
     Route: 048
  13. ASPIRIN [Concomitant]
     Dosage: 81MG IN THE MORNING
     Route: 048
  14. MYCELEX [Concomitant]
     Dosage: 10MG FIVE TIMES PER DAY
     Route: 048
  15. MULTI-VITAMIN [Concomitant]
     Route: 048
  16. COLACE [Concomitant]
     Dosage: 100MG TWICE PER DAY
     Route: 048
  17. LORTAB [Concomitant]
     Dosage: 1TAB AS REQUIRED
     Route: 048
  18. SIMETHICONE [Concomitant]
     Route: 048
  19. FOLIC ACID [Concomitant]
     Dosage: 1MG PER DAY
     Route: 048
  20. SYNTHROID [Concomitant]
     Dosage: 25MCG PER DAY
     Route: 048
  21. EVISTA [Concomitant]
     Route: 048

REACTIONS (1)
  - RASH [None]
